FAERS Safety Report 4511962-6 (Version None)
Quarter: 2004Q4

REPORT INFORMATION
  Report Type: 
  Country: None (occurrence: None)
  Receive Date: 20041123
  Receipt Date: 20041111
  Transmission Date: 20050328
  Serious: Yes (Hospitalization)
  Sender: FDA-Public Use
  Company Number: 2004-BP-12021BP

PATIENT
  Age: 71 Year
  Sex: Female

DRUGS (3)
  1. SPIRIVA [Suspect]
     Indication: CHRONIC OBSTRUCTIVE AIRWAYS DISEASE
     Dosage: 18 MCG (18 MCG, 1 QD), IH
     Route: 055
  2. LIPITOR [Concomitant]
  3. LINEZOLID (LINEZOLID) [Concomitant]

REACTIONS (3)
  - GLAUCOMA [None]
  - PULMONARY HYPERTENSION [None]
  - SKIN ULCER [None]
